FAERS Safety Report 7320970 (Version 8)
Quarter: 2014Q1

REPORT INFORMATION
  Report Type: Spontaneous
  Country: US (occurrence: US)
  Receive Date: 20100316
  Receipt Date: 20140210
  Transmission Date: 20141002
  Serious: Yes (Hospitalization)
  Sender: FDA-Public Use
  Company Number: US-BAYER-201016355NA

PATIENT
  Age: 26 Year
  Sex: Female
  Weight: 58.96 kg

DRUGS (16)
  1. YASMIN [Suspect]
     Indication: CONTRACEPTION
     Route: 048
     Dates: start: 200501, end: 200806
  2. YASMIN [Suspect]
     Indication: CONTRACEPTION
     Dosage: UNK
     Dates: start: 20050628, end: 200805
  3. ALPRAZOLAM [Concomitant]
     Dosage: UNK UNK, PRN
     Dates: start: 20050829
  4. ALPRAZOLAM [Concomitant]
     Dosage: 0.25 MG, UNK
     Route: 048
  5. ZOLOFT [Concomitant]
     Dosage: UNK UNK, QD
     Dates: start: 20050829
  6. ATENOLOL [Concomitant]
     Dosage: 25 MG, UNK
     Route: 048
     Dates: start: 2007
  7. MIDODRINE [Concomitant]
     Dosage: 5 MG, UNK
     Route: 048
     Dates: start: 2007
  8. CITALOPRAM [Concomitant]
     Dosage: 10 MG, UNK
     Route: 048
  9. SERTRALINE [Concomitant]
     Dosage: 100 MG, UNK
     Route: 048
  10. PANTOPRAZOLE [Concomitant]
     Dosage: 40 MG, UNK
     Route: 048
  11. CELEXA [Concomitant]
     Route: 048
  12. PROZAC [Concomitant]
     Dosage: 20 MG, UNK
     Route: 048
  13. NTG [Concomitant]
     Route: 060
  14. ASPIRIN [Concomitant]
     Route: 048
  15. XANAX [Concomitant]
  16. ALBUTEROL [Concomitant]
     Dosage: UNK
     Dates: start: 1994

REACTIONS (7)
  - Supraventricular tachycardia [Unknown]
  - Cholelithiasis [None]
  - Cholecystitis acute [None]
  - Palpitations [Unknown]
  - Abdominal pain upper [None]
  - Gallbladder disorder [None]
  - Pain [Unknown]
